FAERS Safety Report 16930633 (Version 8)
Quarter: 2022Q1

REPORT INFORMATION
  Report Type: Spontaneous
  Country: US (occurrence: US)
  Receive Date: 20191017
  Receipt Date: 20220203
  Transmission Date: 20220423
  Serious: No
  Sender: FDA-Public Use
  Company Number: US-PFIZER INC-2019447697

PATIENT
  Age: 82 Year
  Sex: Male
  Weight: 95 kg

DRUGS (1)
  1. TOVIAZ [Suspect]
     Active Substance: FESOTERODINE FUMARATE
     Indication: Pollakiuria
     Dosage: 8 MG, 1X/DAY
     Route: 048
     Dates: start: 2018

REACTIONS (4)
  - Hypoacusis [Not Recovered/Not Resolved]
  - Dry mouth [Not Recovered/Not Resolved]
  - Condition aggravated [Not Recovered/Not Resolved]
  - Visual impairment [Not Recovered/Not Resolved]
